FAERS Safety Report 8186623 (Version 2)
Quarter: 2013Q1

REPORT INFORMATION
  Report Type: Spontaneous
  Country: US (occurrence: US)
  Receive Date: 20111018
  Receipt Date: 20130201
  Transmission Date: 20140127
  Serious: Yes (Other)
  Sender: FDA-Public Use
  Company Number: CHPA2011US14083

PATIENT
  Age: 74 Year
  Sex: Female

DRUGS (3)
  1. BENEFIBER W/ WHEAT DEXTRIN [Suspect]
     Indication: SUPPLEMENTATION THERAPY
     Dosage: 2 TSP, BID
     Route: 048
     Dates: start: 2011
  2. BENEFIBER W/ WHEAT DEXTRIN [Suspect]
     Dosage: 2 TSP, QOD
     Route: 048
  3. TOPAL [Concomitant]
     Indication: CARDIAC DISORDER
     Dosage: UNK
     Dates: start: 201109

REACTIONS (2)
  - Mass [Not Recovered/Not Resolved]
  - Diarrhoea [Recovered/Resolved]
